FAERS Safety Report 9682809 (Version 2)
Quarter: 2014Q1

REPORT INFORMATION
  Report Type: Spontaneous
  Country: US (occurrence: US)
  Receive Date: 20131112
  Receipt Date: 20140219
  Transmission Date: 20141002
  Serious: No
  Sender: FDA-Public Use
  Company Number: US-TEVA-443396USA

PATIENT
  Age: 27 Year
  Sex: Female
  Weight: 63.56 kg

DRUGS (3)
  1. PARAGARD 380A [Suspect]
     Indication: CONTRACEPTION
     Route: 015
     Dates: start: 200903, end: 201311
  2. ZOLOFT [Concomitant]
     Indication: ANXIETY
     Dosage: 150 MILLIGRAM DAILY;
     Route: 048
  3. KLONOPIN [Concomitant]
     Indication: ANXIETY
     Route: 048

REACTIONS (2)
  - Vaginal haemorrhage [Unknown]
  - Muscle spasms [Not Recovered/Not Resolved]
